FAERS Safety Report 15934472 (Version 1)
Quarter: 2019Q1

REPORT INFORMATION
  Report Type: Spontaneous
  Country: PL (occurrence: PL)
  Receive Date: 20190207
  Receipt Date: 20190207
  Transmission Date: 20190417
  Serious: Yes (Life-Threatening, Hospitalization, Other)
  Sender: FDA-Public Use
  Company Number: PL-BAUSCH-BL-2019-003410

PATIENT
  Age: 52 Year
  Sex: Male

DRUGS (1)
  1. METFORMIN HYDROCHLORIDE. [Suspect]
     Active Substance: METFORMIN HYDROCHLORIDE
     Indication: TYPE 2 DIABETES MELLITUS
     Route: 065

REACTIONS (15)
  - Abdominal tenderness [Unknown]
  - Atrial fibrillation [Unknown]
  - Nausea [Unknown]
  - Rales [Unknown]
  - General physical condition abnormal [Unknown]
  - Metabolic acidosis [Unknown]
  - Vomiting [Unknown]
  - Respiratory rate increased [Unknown]
  - Ventricular arrhythmia [Unknown]
  - Heart rate increased [Unknown]
  - Abdominal pain [Unknown]
  - Lactic acidosis [Unknown]
  - Condition aggravated [Unknown]
  - Chest pain [Unknown]
  - Blood pressure decreased [Unknown]
